FAERS Safety Report 16848301 (Version 1)
Quarter: 2019Q3

REPORT INFORMATION
  Report Type: Spontaneous
  Country: FR (occurrence: FR)
  Receive Date: 20190925
  Receipt Date: 20190925
  Transmission Date: 20191005
  Serious: Yes (Hospitalization)
  Sender: FDA-Public Use
  Company Number: FR-TEVA-2019-FR-1111734

PATIENT
  Age: 35 Year
  Sex: Female

DRUGS (2)
  1. FENTANYL. [Suspect]
     Active Substance: FENTANYL
     Dosage: 75MCG/ HOUR
     Route: 062
     Dates: start: 2014
  2. CHLORHYDRATE DE TRAMADOL [Suspect]
     Active Substance: TRAMADOL HYDROCHLORIDE
     Dosage: 200MG/ 12 HOURS/ 9 YEARS
     Route: 048
     Dates: start: 2010, end: 20190902

REACTIONS (2)
  - Drug dependence [Recovering/Resolving]
  - Drug withdrawal syndrome [Recovered/Resolved]

NARRATIVE: CASE EVENT DATE: 2019
